FAERS Safety Report 5903567-7 (Version None)
Quarter: 2008Q3

REPORT INFORMATION
  Report Type: 
  Country: None (occurrence: None)
  Receive Date: 20080919
  Receipt Date: 20080808
  Transmission Date: 20090109
  Serious: No
  Sender: FDA-Public Use
  Company Number: US-WYE-H05558608

PATIENT
  Sex: Male

DRUGS (3)
  1. PRISTIQ (DESVENLAFAXINE SUCCINATE MONOHYDRATE, [Suspect]
     Dates: start: 20080725
  2. METHADONE HCL [Concomitant]
  3. XANAX [Concomitant]

REACTIONS (2)
  - BODY TEMPERATURE INCREASED [None]
  - RESTLESSNESS [None]
